FAERS Safety Report 21692343 (Version 2)
Quarter: 2022Q4

REPORT INFORMATION
  Report Type: Spontaneous
  Country: IR (occurrence: IR)
  Receive Date: 20221207
  Receipt Date: 20221228
  Transmission Date: 20230112
  Serious: Yes (Death, Life-Threatening, Other)
  Sender: FDA-Public Use
  Company Number: IR-PFIZER INC-PV202200116037

PATIENT
  Age: 53 Month
  Sex: Female

DRUGS (8)
  1. AMPHOTERICIN B [Suspect]
     Active Substance: AMPHOTERICIN B
     Indication: Antifungal treatment
     Dosage: 1 MG/KG, DAILY
     Route: 042
  2. AMPHOTERICIN B [Suspect]
     Active Substance: AMPHOTERICIN B
     Indication: Aspergillus infection
     Dosage: UNK
  3. INTERFERON GAMMA [Suspect]
     Active Substance: INTERFERON GAMMA
     Indication: Aspergillus infection
     Dosage: 50 UG/M2 THREE TIMES, WEEKLY
     Route: 042
  4. ITRACONAZOLE [Suspect]
     Active Substance: ITRACONAZOLE
     Indication: Aspergillus infection
     Dosage: UNK
     Route: 048
  5. COTRIMOXAZOLE [Suspect]
     Active Substance: SULFAMETHOXAZOLE\TRIMETHOPRIM
     Indication: Aspergillus infection
     Dosage: UNK
  6. FLUCYTOSINE [Suspect]
     Active Substance: FLUCYTOSINE
     Indication: Aspergillus infection
     Dosage: UNK
  7. AMPHOTERICIN B [Suspect]
     Active Substance: AMPHOTERICIN B
     Indication: Aspergillus infection
     Dosage: 12 MG/KG, DAILY
     Route: 042
  8. INTERFERON GAMMA [Suspect]
     Active Substance: INTERFERON GAMMA
     Indication: Aspergillus infection
     Route: 065

REACTIONS (1)
  - Disseminated aspergillosis [Fatal]
